FAERS Safety Report 13191918 (Version 1)
Quarter: 2017Q1

REPORT INFORMATION
  Report Type: Spontaneous
  Country: US (occurrence: US)
  Receive Date: 20170207
  Receipt Date: 20170207
  Transmission Date: 20170428
  Serious: No
  Sender: FDA-Public Use
  Company Number: US-PFIZER INC-2017047842

PATIENT

DRUGS (4)
  1. BUPIVACAINE HCL [Suspect]
     Active Substance: BUPIVACAINE HYDROCHLORIDE
     Indication: ANAESTHESIA
     Dosage: 1.6 ML, SINGLE
     Route: 037
     Dates: start: 20170124
  2. BUPIVACAINE HCL [Suspect]
     Active Substance: BUPIVACAINE HYDROCHLORIDE
     Dosage: 1.6 ML, SINGLE
     Route: 037
  3. DEXTROSE. [Concomitant]
     Active Substance: DEXTROSE
     Dosage: UNK, SINGLE
     Route: 037
  4. DEXTROSE. [Concomitant]
     Active Substance: DEXTROSE
     Dosage: UNK, SINGLE
     Route: 037

REACTIONS (1)
  - Drug ineffective [Unknown]

NARRATIVE: CASE EVENT DATE: 20170124
